FAERS Safety Report 5157066-3 (Version None)
Quarter: 2006Q4

REPORT INFORMATION
  Report Type: 
  Country: None (occurrence: None)
  Receive Date: 20061127
  Receipt Date: 20061114
  Transmission Date: 20070319
  Serious: Yes (Other)
  Sender: FDA-Public Use
  Company Number: DE-JNJFOC-20060905315

PATIENT
  Sex: Female
  Weight: 117 kg

DRUGS (1)
  1. TOPAMAX [Suspect]
     Indication: MIGRAINE PROPHYLAXIS
     Dosage: INITIATED SINCE 2 MONTHS
     Route: 048

REACTIONS (1)
  - DERMAL CYST [None]
